FAERS Safety Report 9165039 (Version 1)
Quarter: 2013Q1

REPORT INFORMATION
  Report Type: Spontaneous
  Country: DE (occurrence: DE)
  Receive Date: 20130315
  Receipt Date: 20130315
  Transmission Date: 20140127
  Serious: Yes (Other)
  Sender: FDA-Public Use
  Company Number: DE-JNJFOC-20130301885

PATIENT
  Age: 22 Year
  Sex: Female
  Weight: 81 kg

DRUGS (8)
  1. XEPLION [Suspect]
     Indication: PSYCHOTIC DISORDER
     Route: 030
     Dates: start: 20121218
  2. XEPLION [Suspect]
     Indication: PSYCHOTIC DISORDER
     Route: 030
     Dates: start: 20121225
  3. XEPLION [Suspect]
     Indication: SCHIZOPHRENIA
     Route: 030
     Dates: start: 20121225
  4. XEPLION [Suspect]
     Indication: SCHIZOPHRENIA
     Route: 030
     Dates: start: 20121218
  5. AMISULPRIDE [Suspect]
     Indication: PSYCHOTIC DISORDER
     Route: 048
     Dates: start: 20121213, end: 20130102
  6. AMISULPRIDE [Suspect]
     Indication: SCHIZOPHRENIA
     Route: 048
     Dates: start: 20121213, end: 20130102
  7. PROMETHAZINE [Concomitant]
     Indication: SLEEP DISORDER
     Route: 048
     Dates: start: 20121213
  8. PROMETHAZINE [Concomitant]
     Indication: RESTLESSNESS
     Route: 048
     Dates: start: 20121213

REACTIONS (6)
  - Rhabdomyolysis [Not Recovered/Not Resolved]
  - Blood creatine phosphokinase increased [Not Recovered/Not Resolved]
  - Delirium [Unknown]
  - Masked facies [Unknown]
  - Chills [Unknown]
  - Akinesia [Unknown]
